FAERS Safety Report 7009939-4 (Version None)
Quarter: 2010Q3

REPORT INFORMATION
  Report Type: 
  Country: None (occurrence: None)
  Receive Date: 20100921
  Receipt Date: 20100903
  Transmission Date: 20110219
  Serious: Yes (Other)
  Sender: FDA-Public Use
  Company Number: US-ACCORD-005769

PATIENT
  Age: 67 Year
  Sex: Female

DRUGS (1)
  1. MYCOPHENOLATE MOFETIL [Suspect]
     Indication: WEGENER'S GRANULOMATOSIS
     Dosage: 2000.00-MG-1.0 DA / YS

REACTIONS (9)
  - ALVEOLAR PROTEINOSIS [None]
  - BLOOD POTASSIUM DECREASED [None]
  - BRONCHIECTASIS [None]
  - CLUBBING [None]
  - HAEMOGLOBIN DECREASED [None]
  - HYPERGLYCAEMIA [None]
  - MYOPATHY [None]
  - OFF LABEL USE [None]
  - RED BLOOD CELL COUNT DECREASED [None]
